FAERS Safety Report 10852121 (Version 1)
Quarter: 2015Q1

REPORT INFORMATION
  Report Type: Spontaneous
  Country: US (occurrence: US)
  Receive Date: 20150222
  Receipt Date: 20150222
  Transmission Date: 20150721
  Serious: No
  Sender: FDA-Public Use
  Company Number: US-ALLERGAN-1421682US

PATIENT
  Sex: Female

DRUGS (2)
  1. BOTOX [Suspect]
     Active Substance: ONABOTULINUMTOXINA
     Indication: TORTICOLLIS
     Dosage: UNK, SINGLE
     Dates: start: 20140925, end: 20140925
  2. BOTOX [Suspect]
     Active Substance: ONABOTULINUMTOXINA
     Indication: DYSTONIA

REACTIONS (2)
  - Off label use [Unknown]
  - Migraine [Unknown]
